FAERS Safety Report 6726230-1 (Version None)
Quarter: 2010Q2

REPORT INFORMATION
  Report Type: 
  Country: None (occurrence: None)
  Receive Date: 20100514
  Receipt Date: 20100504
  Transmission Date: 20101027
  Serious: Yes (Disabling, Other)
  Sender: FDA-Public Use
  Company Number: US-PFIZER INC-2010031441

PATIENT
  Sex: Female
  Weight: 74 kg

DRUGS (6)
  1. XALATAN [Suspect]
     Indication: GLAUCOMA
     Dosage: UNK
     Dates: start: 20060101
  2. XALEASE [Suspect]
     Dosage: UNK
  3. NOVOLOG [Concomitant]
     Indication: DIABETES MELLITUS
     Dosage: UNK
  4. VALSARTAN [Concomitant]
     Indication: HYPERTENSION
     Dosage: UNK
  5. LIPITOR [Concomitant]
     Indication: BLOOD CHOLESTEROL INCREASED
     Dosage: UNK
  6. LANTUS [Concomitant]
     Dosage: UNK

REACTIONS (2)
  - BIPOLAR DISORDER [None]
  - OCULAR DISCOMFORT [None]
